FAERS Safety Report 20305182 (Version 4)
Quarter: 2022Q4

REPORT INFORMATION
  Report Type: Spontaneous
  Country: US (occurrence: US)
  Receive Date: 20220106
  Receipt Date: 20221215
  Transmission Date: 20230113
  Serious: No
  Sender: FDA-Public Use
  Company Number: US-BIOGEN-2022BI01083549

PATIENT
  Age: 49 Year
  Sex: Female

DRUGS (2)
  1. TYSABRI [Suspect]
     Active Substance: NATALIZUMAB
     Indication: Multiple sclerosis
     Route: 050
     Dates: start: 20180501
  2. TYSABRI [Suspect]
     Active Substance: NATALIZUMAB
     Dosage: 300 MILLIGRAM PER GRAM
     Route: 050
     Dates: start: 20180501

REACTIONS (4)
  - Product dose omission issue [Unknown]
  - General physical health deterioration [Unknown]
  - COVID-19 [Unknown]
  - Eye disorder [Unknown]

NARRATIVE: CASE EVENT DATE: 20211231
